FAERS Safety Report 7971206-X (Version None)
Quarter: 2011Q4

REPORT INFORMATION
  Report Type: 
  Country: None (occurrence: None)
  Receive Date: 20111212
  Receipt Date: 20111130
  Transmission Date: 20120403
  Serious: Yes (Other)
  Sender: FDA-Public Use
  Company Number: PHHY2011BE86619

PATIENT
  Sex: Male

DRUGS (6)
  1. INVEGA [Concomitant]
     Dosage: 9 MG, QD
  2. DOMINAL ^ASTA^ [Concomitant]
     Dosage: 80 MG, QD
  3. LORAZEPAM [Concomitant]
     Dosage: 1 MG, QD
  4. ABILIFY [Concomitant]
     Dates: start: 20110824
  5. CLOZAPINE [Suspect]
     Dosage: 100 MG/ 5 ML
     Dates: start: 20111028
  6. CLOZAPINE [Suspect]
     Indication: SCHIZOPHRENIA
     Dosage: 300 MG
     Dates: start: 20110824, end: 20110921

REACTIONS (3)
  - NEUTROPHIL COUNT INCREASED [None]
  - LEUKOCYTOSIS [None]
  - EOSINOPHILIA [None]
